FAERS Safety Report 25487832 (Version 1)
Quarter: 2025Q2

REPORT INFORMATION
  Report Type: Spontaneous
  Country: GB (occurrence: GB)
  Receive Date: 20250627
  Receipt Date: 20250627
  Transmission Date: 20250717
  Serious: Yes (Other)
  Sender: TEVA
  Company Number: GB-MHRA-TPP24474942C9987576YC1750768438216

PATIENT
  Age: 69 Year
  Sex: Female
  Weight: 136 kg

DRUGS (22)
  1. MONTELUKAST [Suspect]
     Active Substance: MONTELUKAST
     Indication: Product used for unknown indication
     Dosage: ONE TO BE TAKEN AT NIGHT, DAILY DOSE: 1 DOSAGE FORM DAILY
     Route: 065
     Dates: start: 20250520
  2. AMLODIPINE [Concomitant]
     Active Substance: AMLODIPINE BESYLATE
     Indication: Ill-defined disorder
     Dosage: ONE TO BE TAKEN DAILY, DAILY DOSE: 1 DOSAGE FORM DAILY
     Route: 065
     Dates: start: 20240723
  3. DERMOL [Concomitant]
     Active Substance: BENZALKONIUM CHLORIDE\CHLORHEXIDINE HYDROCHLORIDE\ISOPROPYL MYRISTATE\PARAFFIN
     Indication: Ill-defined disorder
     Route: 065
     Dates: start: 20250404
  4. CODEINE PHOSPHATE [Concomitant]
     Active Substance: CODEINE PHOSPHATE
     Indication: Ill-defined disorder
     Route: 065
     Dates: start: 20240723
  5. FLAMINAL FORTE [Concomitant]
     Indication: Ill-defined disorder
     Route: 065
     Dates: start: 20250606, end: 20250607
  6. PREGABALIN [Concomitant]
     Active Substance: PREGABALIN
     Indication: Ill-defined disorder
     Dosage: ONE TO BE TAKEN TWICE DAILY, DAILY DOSE: 2 DOSAGE FORM DAILY
     Route: 065
     Dates: start: 20240723
  7. AQUACEL AG  EXTRA [Concomitant]
     Indication: Ill-defined disorder
     Route: 065
     Dates: start: 20250519, end: 20250520
  8. DOXYCYCLINE [Concomitant]
     Active Substance: DOXYCYCLINE
     Indication: Ill-defined disorder
     Route: 065
     Dates: start: 20250521, end: 20250526
  9. AMITRIPTYLINE HYDROCHLORIDE [Concomitant]
     Active Substance: AMITRIPTYLINE HYDROCHLORIDE
     Indication: Ill-defined disorder
     Dosage: ONE TO BE TAKEN AT NIGHT, DAILY DOSE : 1 DOSAGE FORM DAILY
     Route: 065
     Dates: start: 20240723
  10. OMEPRAZOLE [Concomitant]
     Active Substance: OMEPRAZOLE
     Indication: Ill-defined disorder
     Dosage: ONE TO BE TAKEN DAILY, DAILY DOSE : 1 DOSAGE FORM DAILY
     Route: 065
     Dates: start: 20240723
  11. FLUCLOXACILLIN [Concomitant]
     Active Substance: FLUCLOXACILLIN
     Indication: Ill-defined disorder
     Dosage: ONE TO BE TAKEN FOUR TIMES DAILY, DAILY DOSE: 4 DOSAGE FORM DAILY, DURATION: 8 DAYS
     Route: 065
     Dates: start: 20250506, end: 20250513
  12. IBUPROFEN [Concomitant]
     Active Substance: IBUPROFEN
     Indication: Ill-defined disorder
     Dosage: APPLY THREE TIMES DAILY, DAILY DOSE: 3 DOSAGE FORM DAILY
     Route: 065
     Dates: start: 20240723
  13. METFORMIN [Concomitant]
     Active Substance: METFORMIN HYDROCHLORIDE
     Indication: Ill-defined disorder
     Dosage: THREE TO BE TAKEN DAILY, DAILY DOSE: 3 DOSAGE FORM DAILY
     Route: 065
     Dates: start: 20240723
  14. LISINOPRIL [Concomitant]
     Active Substance: LISINOPRIL
     Indication: Ill-defined disorder
     Dosage: ONE TO BE TAKEN DAILY, DAILY DOSE : 1 DOSAGE FORM DAILY, DURATION: 151 DAYS
     Route: 065
     Dates: start: 20250106, end: 20250605
  15. ACETAMINOPHEN [Concomitant]
     Active Substance: ACETAMINOPHEN
     Indication: Ill-defined disorder
     Route: 065
     Dates: start: 20240723
  16. FUROSEMIDE [Concomitant]
     Active Substance: FUROSEMIDE
     Indication: Ill-defined disorder
     Dosage: ONE TO BE TAKEN EACH MORNING, DAILY DOSE : 1 DOSAGE FORM DAILY
     Route: 065
     Dates: start: 20250521
  17. SPIRIVA [Concomitant]
     Active Substance: TIOTROPIUM BROMIDE MONOHYDRATE
     Indication: Ill-defined disorder
     Dosage: TWO PUFFS ONCE DAILY, DAILY DOSE : 2 DOSAGE FORM DAILY
     Route: 065
     Dates: start: 20240723
  18. BUPRENORPHINE [Concomitant]
     Active Substance: BUPRENORPHINE
     Indication: Ill-defined disorder
     Route: 065
     Dates: start: 20250203
  19. ATORVASTATIN [Concomitant]
     Active Substance: ATORVASTATIN
     Indication: Ill-defined disorder
     Dosage: ONE TO BE TAKEN DAILY, DAILY DOSE : 1 DOSAGE FORM DAILY
     Route: 065
     Dates: start: 20240723
  20. ACETAZOLAMIDE [Concomitant]
     Active Substance: ACETAZOLAMIDE
     Indication: Ill-defined disorder
     Dosage: ONE TO BE TAKEN DAILY, DAILY DOSE : 1 DOSAGE FORM DAILY
     Route: 065
     Dates: start: 20240723
  21. MIRTAZAPINE [Concomitant]
     Active Substance: MIRTAZAPINE
     Indication: Ill-defined disorder
     Dosage: ONE TO BE TAKEN EVERY NIGHT,DAILY DOSE : 1 DOSAGE FORM DAILY
     Route: 065
     Dates: start: 20240807
  22. EASYHALER [Concomitant]
     Indication: Ill-defined disorder
     Route: 065
     Dates: start: 20240723

REACTIONS (8)
  - Epistaxis [Recovered/Resolved with Sequelae]
  - Conjunctivitis [Recovering/Resolving]
  - Glossodynia [Recovered/Resolved]
  - Eye discharge [Recovering/Resolving]
  - Mydriasis [Recovered/Resolved]
  - Eye swelling [Recovering/Resolving]
  - Headache [Recovered/Resolved]
  - Vision blurred [Recovered/Resolved]

NARRATIVE: CASE EVENT DATE: 20250613
